FAERS Safety Report 5422222-3 (Version None)
Quarter: 2007Q3

REPORT INFORMATION
  Report Type: 
  Country: None (occurrence: None)
  Receive Date: 20070820
  Receipt Date: 20070820
  Transmission Date: 20080115
  Serious: Yes (Death)
  Sender: FDA-Public Use
  Company Number: None

PATIENT
  Sex: Male
  Weight: 90.7194 kg

DRUGS (25)
  1. DOCETAXEL [Suspect]
     Indication: NON-SMALL CELL LUNG CANCER METASTATIC
     Dosage: 77 MG IV/250ML 0.9NS
     Route: 042
     Dates: start: 20070522
  2. DOCETAXEL [Suspect]
     Indication: NON-SMALL CELL LUNG CANCER METASTATIC
     Dosage: 77 MG IV/250ML 0.9NS
     Route: 042
     Dates: start: 20070529
  3. DOCETAXEL [Suspect]
     Indication: NON-SMALL CELL LUNG CANCER METASTATIC
     Dosage: 77 MG IV/250ML 0.9NS
     Route: 042
     Dates: start: 20070605
  4. DOCETAXEL [Suspect]
     Indication: NON-SMALL CELL LUNG CANCER METASTATIC
     Dosage: 77 MG IV/250ML 0.9NS
     Route: 042
     Dates: start: 20070619
  5. DOCETAXEL [Suspect]
     Indication: NON-SMALL CELL LUNG CANCER METASTATIC
     Dosage: 77 MG IV/250ML 0.9NS
     Route: 042
     Dates: start: 20070625
  6. CAPECITABINE 500MG AND 150 MG TABLETS (ROCHE) [Suspect]
     Indication: NON-SMALL CELL LUNG CANCER METASTATIC
     Dosage: 1300 MG PO BID D5-18
     Route: 048
     Dates: start: 20070526, end: 20070608
  7. CAPECITABINE 500MG AND 150 MG TABLETS (ROCHE) [Suspect]
     Indication: NON-SMALL CELL LUNG CANCER METASTATIC
     Dosage: 1300 MG PO BID D5-18
     Route: 048
     Dates: start: 20070623, end: 20070629
  8. CAPECITABINE [Suspect]
  9. ZOCOR [Concomitant]
  10. PLENDIL [Concomitant]
  11. ZESTRIL [Concomitant]
  12. LASIX [Concomitant]
  13. COREG [Concomitant]
  14. METFORMIN HCL [Concomitant]
  15. MEGACE [Concomitant]
  16. LANTUS [Concomitant]
  17. NOVOLOG [Concomitant]
  18. COMBIVENT [Concomitant]
  19. DECADRON W/ CHEMO [Concomitant]
  20. IRON [Concomitant]
  21. ZOFRAN [Concomitant]
  22. COMPAZINE [Concomitant]
  23. EMEND [Concomitant]
  24. FOLIC ACID [Concomitant]
  25. PROCRIT [Concomitant]

REACTIONS (4)
  - CARDIO-RESPIRATORY ARREST [None]
  - DRUG TOXICITY [None]
  - HAEMOGLOBIN DECREASED [None]
  - HAEMOPTYSIS [None]
